FAERS Safety Report 10101258 (Version 1)
Quarter: 2014Q2

REPORT INFORMATION
  Report Type: Spontaneous
  Country: US (occurrence: None)
  Receive Date: 20140423
  Receipt Date: 20140423
  Transmission Date: 20141212
  Serious: Yes (Disabling)
  Sender: FDA-Public Use
  Company Number: None

PATIENT
  Age: 66 Year
  Sex: Female
  Weight: 58.06 kg

DRUGS (1)
  1. RESTASIS . [Suspect]
     Indication: DRY EYE
     Dosage: 1 DROP?TWICE DAILY?INTO THE EYE
     Dates: start: 20131104, end: 20140115

REACTIONS (2)
  - Fall [None]
  - Balance disorder [None]
